FAERS Safety Report 22287263 (Version 1)
Quarter: 2023Q2

REPORT INFORMATION
  Report Type: Other
  Country: US (occurrence: None)
  Receive Date: 20230505
  Receipt Date: 20230505
  Transmission Date: 20230721
  Serious: Yes (Hospitalization)
  Sender: FDA-Public Use
  Company Number: US-ROCHE-3341545

PATIENT
  Age: 12 Year
  Sex: Female
  Weight: 34.8 kg

DRUGS (1)
  1. EVRYSDI [Suspect]
     Active Substance: RISDIPLAM
     Indication: Spinal muscular atrophy
     Route: 048

REACTIONS (4)
  - Pyrexia [Unknown]
  - Headache [Unknown]
  - Vomiting [Unknown]
  - Cough [Not Recovered/Not Resolved]
